FAERS Safety Report 6132245-7 (Version None)
Quarter: 2009Q1

REPORT INFORMATION
  Report Type: 
  Country: None (occurrence: None)
  Receive Date: 20090325
  Receipt Date: 20090311
  Transmission Date: 20090719
  Serious: Yes (Hospitalization)
  Sender: FDA-Public Use
  Company Number: SE-PFIZER INC-2009182122

PATIENT

DRUGS (13)
  1. BLINDED *PLACEBO [Suspect]
     Indication: PROSTATE CANCER
     Dosage: UNK
     Route: 048
     Dates: start: 20090205, end: 20090309
  2. BLINDED SUNITINIB MALATE [Suspect]
     Indication: PROSTATE CANCER
     Dosage: UNK
     Route: 048
     Dates: start: 20090205, end: 20090309
  3. PREDNISOLONE AND PREDNISOLONE STEAGLATE [Suspect]
     Indication: PROSTATE CANCER
     Dosage: FREQUENCY: TWICE, EVERY DAY;
     Route: 048
     Dates: start: 20090205, end: 20090309
  4. TRAMADOL HCL [Suspect]
     Dosage: UNK
     Route: 048
     Dates: start: 20080213
  5. DICLOFENAC [Concomitant]
     Dosage: 50 MG, 2X/DAY
     Route: 048
     Dates: start: 20080101
  6. PRIMPERAN [Concomitant]
     Indication: NAUSEA
     Dosage: 10 MG 1X3
     Route: 048
     Dates: start: 20090201
  7. PRAVASTATIN [Concomitant]
     Indication: HYPERCHOLESTEROLAEMIA
     Dosage: 40 MG, 1X/DAY
     Route: 048
     Dates: start: 20010101, end: 20080313
  8. AMLODIPINE [Concomitant]
     Indication: HYPERTENSION
     Dosage: 5 MG, UNK
     Route: 048
     Dates: start: 20010101
  9. SELOKEN [Concomitant]
     Indication: HYPERTENSION
     Dosage: 50 MG, 2X/DAY
     Route: 048
     Dates: start: 20010101
  10. TROMBYL [Concomitant]
     Indication: THROMBOSIS PROPHYLAXIS
     Dosage: 75 MG, 1X/DAY
     Route: 048
     Dates: start: 20010101
  11. OMEPRAZOLE [Concomitant]
     Indication: GASTRITIS PROPHYLAXIS
     Dosage: 20 MG, 1X/DAY
     Route: 048
     Dates: start: 20080101
  12. ACETAMINOPHEN [Concomitant]
     Indication: PAIN
     Dosage: 500 MG, AS NEEDED
     Route: 048
     Dates: start: 20080101
  13. PROCRIN DEPOT [Concomitant]
     Indication: PROSTATE CANCER
     Dosage: 11.25 MG, 1/3 MON
     Dates: start: 20000901

REACTIONS (2)
  - FATIGUE [None]
  - VOMITING [None]
